FAERS Safety Report 7797350-8 (Version None)
Quarter: 2011Q4

REPORT INFORMATION
  Report Type: 
  Country: None (occurrence: None)
  Receive Date: 20111005
  Receipt Date: 20110929
  Transmission Date: 20120403
  Serious: Yes (Death, Other)
  Sender: FDA-Public Use
  Company Number: IE-CELGENEUS-229-21880-11052914

PATIENT
  Sex: Male

DRUGS (12)
  1. REVLIMID [Suspect]
     Dosage: 15 MILLIGRAM
     Route: 048
     Dates: start: 20100801
  2. DEXAMETHASONE [Concomitant]
     Dosage: 10 MILLIGRAM
     Route: 048
     Dates: start: 20100801
  3. ASPIRIN [Concomitant]
     Route: 065
  4. REVLIMID [Suspect]
     Dosage: 15 MILLIGRAM
     Route: 048
     Dates: end: 20090701
  5. MOTILIUM [Concomitant]
     Dosage: 40 MILLIGRAM
     Route: 065
  6. FLUOXETINE [Concomitant]
     Dosage: 30 MILLIGRAM
     Route: 065
  7. NEXIUM [Concomitant]
     Dosage: 40 MILLIGRAM
     Route: 065
  8. ATROVENT [Concomitant]
     Dosage: 8 DOSAGE FORMS
     Route: 055
  9. MOVIPREP [Concomitant]
     Dosage: 2 DOSAGE FORMS
     Route: 065
  10. REVLIMID [Suspect]
     Dosage: 25 MILLIGRAM
     Route: 048
     Dates: start: 20090101
  11. BUMETANIDE [Concomitant]
     Dosage: 1 MILLIGRAM
     Route: 065
  12. DEXAMETHASONE [Concomitant]
     Route: 065
     Dates: start: 20090101

REACTIONS (6)
  - TINNITUS [None]
  - CARDIAC DISORDER [None]
  - FATIGUE [None]
  - HYPOCALCAEMIA [None]
  - DIZZINESS [None]
  - OESOPHAGEAL SQUAMOUS CELL CARCINOMA [None]
